FAERS Safety Report 14321305 (Version 2)
Quarter: 2018Q1

REPORT INFORMATION
  Report Type: Spontaneous
  Country: FR (occurrence: FR)
  Receive Date: 20171223
  Receipt Date: 20180123
  Transmission Date: 20180509
  Serious: Yes (Hospitalization)
  Sender: FDA-Public Use
  Company Number: PHHY2017FR191323

PATIENT
  Age: 28 Year
  Sex: Male

DRUGS (16)
  1. MODECATE [Concomitant]
     Active Substance: FLUPHENAZINE DECANOATE
     Indication: SCHIZOPHRENIA
     Dosage: 200 MG, Q2MO
     Route: 065
  2. XEROQUEL [Concomitant]
     Active Substance: QUETIAPINE FUMARATE
     Indication: PRODUCT USED FOR UNKNOWN INDICATION
     Dosage: 300 MG, QD
     Route: 065
  3. ZYPREXA [Concomitant]
     Active Substance: OLANZAPINE
     Indication: PRODUCT USED FOR UNKNOWN INDICATION
     Dosage: UNK
     Route: 065
  4. OLANZAPINE. [Concomitant]
     Active Substance: OLANZAPINE
     Indication: SCHIZOPHRENIA
     Dosage: 20 MG, QD
     Route: 065
  5. FLUVOXAMINE [Concomitant]
     Active Substance: FLUVOXAMINE
     Indication: PRODUCT USED FOR UNKNOWN INDICATION
     Dosage: UNK
     Route: 065
  6. MODECATE [Concomitant]
     Active Substance: FLUPHENAZINE DECANOATE
     Dosage: 200 MG, EVERY 15 DAYS
     Route: 065
  7. FLOXYFRAL [Concomitant]
     Active Substance: FLUVOXAMINE
     Indication: PRODUCT USED FOR UNKNOWN INDICATION
     Dosage: UNK
     Route: 065
  8. PROZAC [Interacting]
     Active Substance: FLUOXETINE HYDROCHLORIDE
     Indication: ANXIETY
     Dosage: 20 MG, UNK
     Route: 065
  9. RISPERDAL CONSTA [Concomitant]
     Active Substance: RISPERIDONE
     Indication: SCHIZOPHRENIA
     Dosage: UNK
     Route: 065
  10. CLOZAPINE. [Suspect]
     Active Substance: CLOZAPINE
     Dosage: 750 MG, QD
     Route: 065
  11. ABILIFY MAINTENA [Interacting]
     Active Substance: ARIPIPRAZOLE
     Indication: SCHIZOPHRENIA
     Dosage: 400 MG, UNK
     Route: 030
  12. FLUPHENAZINE DECANOATE. [Concomitant]
     Active Substance: FLUPHENAZINE DECANOATE
     Indication: SCHIZOPHRENIA
     Dosage: 200 MG, UNK
     Route: 065
  13. CLOZAPINE. [Suspect]
     Active Substance: CLOZAPINE
     Indication: SCHIZOPHRENIA
     Dosage: 600 MG, QD
     Route: 065
  14. FLUOXETINE [Suspect]
     Active Substance: FLUOXETINE HYDROCHLORIDE
     Indication: ANXIETY
     Dosage: 20 MG, UNK
     Route: 065
  15. ABILIFY [Interacting]
     Active Substance: ARIPIPRAZOLE
     Indication: SCHIZOPHRENIA
     Dosage: UNK
     Route: 065
  16. ABILIFY MAINTENA [Interacting]
     Active Substance: ARIPIPRAZOLE
     Dosage: 300 MG, UNK
     Route: 030

REACTIONS (6)
  - Drug interaction [Unknown]
  - Psychiatric decompensation [Unknown]
  - Psychotic disorder [Unknown]
  - Anxiety [Unknown]
  - Suicidal ideation [Unknown]
  - Hallucination [Unknown]

NARRATIVE: CASE EVENT DATE: 20150722
